FAERS Safety Report 4480233-9 (Version None)
Quarter: 2004Q4

REPORT INFORMATION
  Report Type: 
  Country: None (occurrence: None)
  Receive Date: 20041015
  Receipt Date: 20041006
  Transmission Date: 20050328
  Serious: Yes (Death, Hospitalization)
  Sender: FDA-Public Use
  Company Number: STA-AE-04-MTX-402

PATIENT
  Age: 77 Year
  Sex: Female

DRUGS (1)
  1. RHEUMATREX [Suspect]
     Indication: RHEUMATOID ARTHRITIS
     Dosage: 4 MG 1X PER 1 WK; ORAL
     Route: 048
     Dates: start: 20010101, end: 20040827

REACTIONS (15)
  - ABNORMAL FAECES [None]
  - APHAGIA [None]
  - BONE MARROW DEPRESSION [None]
  - CONDITION AGGRAVATED [None]
  - DISSEMINATED INTRAVASCULAR COAGULATION [None]
  - FEELING ABNORMAL [None]
  - GASTROINTESTINAL HAEMORRHAGE [None]
  - PH URINE ABNORMAL [None]
  - PHARYNGOLARYNGEAL PAIN [None]
  - PRODUCTIVE COUGH [None]
  - PYREXIA [None]
  - RHEUMATOID ARTHRITIS [None]
  - SEPSIS [None]
  - STOMATITIS [None]
  - STOOLS WATERY [None]
